FAERS Safety Report 4404295-X (Version None)
Quarter: 2004Q3

REPORT INFORMATION
  Report Type: 
  Country: None (occurrence: None)
  Receive Date: 20040720
  Receipt Date: 20040712
  Transmission Date: 20050211
  Serious: Yes (Life-Threatening, Disabling)
  Sender: FDA-Public Use
  Company Number: 2004GB01699

PATIENT
  Age: 61 Year
  Sex: Female
  Weight: 71.6 kg

DRUGS (4)
  1. SEROQUEL [Suspect]
     Indication: MAJOR DEPRESSION
     Dosage: 400 MG DAILY PO
     Route: 048
     Dates: end: 20040425
  2. METFORMIN HCL [Concomitant]
  3. THYROXINE [Concomitant]
  4. FUROSEMIDE [Concomitant]

REACTIONS (3)
  - CEREBROVASCULAR ACCIDENT [None]
  - DYSPHASIA [None]
  - HEMIPARESIS [None]
